FAERS Safety Report 6277815-0 (Version None)
Quarter: 2009Q3

REPORT INFORMATION
  Report Type: 
  Country: None (occurrence: None)
  Receive Date: 20090717
  Receipt Date: 20090717
  Transmission Date: 20100115
  Serious: Yes (Other)
  Sender: FDA-Public Use
  Company Number: None

PATIENT
  Age: 86 Year
  Sex: Male
  Weight: 70.3075 kg

DRUGS (1)
  1. AMIODARONE HCL [Suspect]
     Indication: CARDIAC FIBRILLATION
     Dosage: 200 MG DAILY PO
     Dates: start: 20081212, end: 20090615

REACTIONS (6)
  - COLOUR BLINDNESS [None]
  - COORDINATION ABNORMAL [None]
  - DIZZINESS [None]
  - DYSPNOEA [None]
  - EYE DISORDER [None]
  - PHOTOPSIA [None]
